FAERS Safety Report 9443696 (Version 2)
Quarter: 2013Q3

REPORT INFORMATION
  Report Type: Spontaneous
  Country: US (occurrence: US)
  Receive Date: 20130806
  Receipt Date: 20130912
  Transmission Date: 20140515
  Serious: Yes (Other)
  Sender: FDA-Public Use
  Company Number: US-PFIZER INC-2013228110

PATIENT
  Age: 50 Year
  Sex: Female
  Weight: 63.49 kg

DRUGS (3)
  1. LYRICA [Suspect]
     Indication: FIBROMYALGIA
     Dosage: 150 MG, 2X/DAY
     Dates: start: 2008
  2. LOVASTATIN [Concomitant]
     Dosage: UNK
  3. METOPROLOL [Concomitant]
     Dosage: UNK

REACTIONS (2)
  - Hepatitis B [Not Recovered/Not Resolved]
  - Hepatitis C [Not Recovered/Not Resolved]
